FAERS Safety Report 8006707-1 (Version None)
Quarter: 2011Q4

REPORT INFORMATION
  Report Type: 
  Country: None (occurrence: None)
  Receive Date: 20111227
  Receipt Date: 20111213
  Transmission Date: 20120403
  Serious: Yes (Hospitalization)
  Sender: FDA-Public Use
  Company Number: FR-BAYER-2011-120409

PATIENT
  Age: 83 Year
  Sex: Female

DRUGS (2)
  1. CIPROFLOXACIN [Suspect]
     Indication: PYELONEPHRITIS
     Dosage: UNK
     Route: 048
     Dates: start: 20100930, end: 20101004
  2. ROCEPHIN [Suspect]
     Indication: PYELONEPHRITIS
     Dosage: UNK
     Route: 042
     Dates: start: 20100924, end: 20101001

REACTIONS (1)
  - DERMATITIS BULLOUS [None]
